FAERS Safety Report 9204304 (Version 1)
Quarter: 2013Q2

REPORT INFORMATION
  Report Type: Spontaneous
  Country: US (occurrence: None)
  Receive Date: 20130401
  Receipt Date: 20130401
  Transmission Date: 20140414
  Serious: No
  Sender: FDA-Public Use
  Company Number: None

PATIENT
  Sex: 0

DRUGS (1)
  1. AMOXICILLIN [Suspect]
     Dates: start: 20130307, end: 20130311

REACTIONS (2)
  - Drug ineffective [None]
  - Product formulation issue [None]
